FAERS Safety Report 6171246-X (Version None)
Quarter: 2009Q2

REPORT INFORMATION
  Report Type: 
  Country: None (occurrence: None)
  Receive Date: 20090428
  Receipt Date: 20090428
  Transmission Date: 20091009
  Serious: Yes (Life-Threatening, Hospitalization)
  Sender: FDA-Public Use
  Company Number: None

PATIENT
  Sex: Female

DRUGS (2)
  1. DILANTIN [Suspect]
     Indication: DRUG ABUSE
  2. TEGRETOL [Suspect]
     Indication: DRUG ABUSE

REACTIONS (1)
  - STEVENS-JOHNSON SYNDROME [None]
